FAERS Safety Report 17685209 (Version 1)
Quarter: 2020Q2

REPORT INFORMATION
  Report Type: Spontaneous
  Country: US (occurrence: US)
  Receive Date: 20200420
  Receipt Date: 20200420
  Transmission Date: 20200714
  Serious: No
  Sender: FDA-Public Use
  Company Number: US-SA-2020SA101733

PATIENT
  Sex: Male
  Weight: 79.37 kg

DRUGS (12)
  1. MUCINEX [Concomitant]
     Active Substance: GUAIFENESIN
  2. VITAMIN D3 [Concomitant]
     Active Substance: CHOLECALCIFEROL
  3. FABRAZYME [Suspect]
     Active Substance: AGALSIDASE BETA
     Indication: LIPIDOSIS
  4. FABRAZYME [Suspect]
     Active Substance: AGALSIDASE BETA
     Indication: GAUCHER^S DISEASE
     Dosage: 80 MG, QOW
     Route: 041
     Dates: start: 20090113
  5. ZINC. [Concomitant]
     Active Substance: ZINC
  6. EPINEPHRINE. [Concomitant]
     Active Substance: EPINEPHRINE
  7. ACETAMINOPHEN. [Concomitant]
     Active Substance: ACETAMINOPHEN
  8. TEGRETOL [Concomitant]
     Active Substance: CARBAMAZEPINE
  9. LYSINE [Concomitant]
     Active Substance: LYSINE
  10. NORMAL SALINE [Concomitant]
     Active Substance: SODIUM CHLORIDE
  11. STERILE WATER [Concomitant]
     Active Substance: WATER
  12. ASPIRIN [ACETYLSALICYLIC ACID] [Concomitant]
     Active Substance: ASPIRIN

REACTIONS (1)
  - Influenza [Unknown]
